FAERS Safety Report 8605827-8 (Version None)
Quarter: 2012Q3

REPORT INFORMATION
  Report Type: 
  Country: None (occurrence: None)
  Receive Date: 20120820
  Receipt Date: 20120815
  Transmission Date: 20120928
  Serious: Yes (Other)
  Sender: FDA-Public Use
  Company Number: US-GLAXOSMITHKLINE-A0989918A

PATIENT
  Age: 34 Year
  Sex: Male
  Weight: 84.1 kg

DRUGS (5)
  1. ALPRAZOLAM [Suspect]
     Indication: ANXIETY
     Route: 048
  2. ZOLOFT [Suspect]
     Indication: ANXIETY
     Dosage: 50MG PER DAY
     Route: 048
     Dates: start: 19990101
  3. PAXIL [Suspect]
     Indication: PRODUCT USED FOR UNKNOWN INDICATION
     Route: 048
  4. SERTRALINE HYDROCHLORIDE [Suspect]
     Indication: ANXIETY
     Dosage: 50MG PER DAY
     Route: 048
     Dates: start: 20120701, end: 20120803
  5. LEXAPRO [Suspect]
     Indication: ANXIETY
     Route: 065
     Dates: start: 20120803

REACTIONS (8)
  - ABASIA [None]
  - BLINDNESS [None]
  - CARDIAC DISORDER [None]
  - VERTIGO [None]
  - DIZZINESS [None]
  - WITHDRAWAL SYNDROME [None]
  - ANXIETY [None]
  - PALPITATIONS [None]
